FAERS Safety Report 5007723-4 (Version None)
Quarter: 2006Q2

REPORT INFORMATION
  Report Type: 
  Country: None (occurrence: None)
  Receive Date: 20060518
  Receipt Date: 20060504
  Transmission Date: 20061013
  Serious: Yes (Hospitalization)
  Sender: FDA-Public Use
  Company Number: 2006RR-02202

PATIENT
  Age: 79 Year
  Sex: Female

DRUGS (9)
  1. SIMVASTATIN(SIMVASTATIN) TABLET [Suspect]
     Indication: LOWER RESPIRATORY TRACT INFECTION
     Dosage: 80 MG, QD, ORAL
     Route: 048
     Dates: start: 20010101, end: 20060119
  2. CLARITHROMYCIN [Suspect]
     Indication: LOWER RESPIRATORY TRACT INFECTION
     Dosage: 500 MG, BID, ORAL
     Route: 048
     Dates: start: 20060112, end: 20060119
  3. ERYTHROMYCIN [Suspect]
     Indication: LOWER RESPIRATORY TRACT INFECTION
     Dosage: ORAL
     Route: 048
     Dates: start: 20060102, end: 20060109
  4. ADCAL-D3 TABLET [Concomitant]
  5. ADCAL-D3 TABLET [Concomitant]
  6. DISPERSIBLE ASPIRIN TABLETS BP 75MG (ASPIRIN) TABLET, [Concomitant]
  7. FRUSEMIDE TABLET 40MG BP (FUROSEMIDE) TABLET, [Concomitant]
  8. DINITRATE D'ISOSORBIDE (ISOSORBIDE DINITRATE) [Concomitant]
  9. LISINOPRIL TABLET 2.5MG (LISINOPRIL) TABLET [Concomitant]

REACTIONS (4)
  - DEHYDRATION [None]
  - DIZZINESS [None]
  - LOWER RESPIRATORY TRACT INFECTION [None]
  - MYOPATHY [None]
